FAERS Safety Report 24309200 (Version 2)
Quarter: 2024Q4

REPORT INFORMATION
  Report Type: Spontaneous
  Country: US (occurrence: US)
  Receive Date: 20240911
  Receipt Date: 20241010
  Transmission Date: 20250114
  Serious: No
  Sender: ASTELLAS
  Company Number: US-ASTELLAS-2024-AER-003371

PATIENT
  Age: 64 Year
  Sex: Female

DRUGS (2)
  1. VEOZAH [Suspect]
     Active Substance: FEZOLINETANT
     Indication: Hot flush
     Dosage: 45 MG ONCE DAILY
     Route: 048
     Dates: start: 20240815, end: 20240824
  2. VEOZAH [Suspect]
     Active Substance: FEZOLINETANT
     Indication: Breast cancer metastatic

REACTIONS (6)
  - Nightmare [Unknown]
  - Insomnia [Recovered/Resolved]
  - Thinking abnormal [Unknown]
  - Expired product administered [Unknown]
  - Off label use [Unknown]
  - Drug ineffective [Unknown]

NARRATIVE: CASE EVENT DATE: 20240801
